FAERS Safety Report 13999297 (Version 2)
Quarter: 2017Q3

REPORT INFORMATION
  Report Type: Spontaneous
  Country: DE (occurrence: DE)
  Receive Date: 20170922
  Receipt Date: 20170927
  Transmission Date: 20171128
  Serious: Yes (Hospitalization, Other)
  Sender: FDA-Public Use
  Company Number: DE-TEVA-806586GER

PATIENT
  Age: 36 Year
  Sex: Male
  Weight: 64 kg

DRUGS (6)
  1. CARBAMAZEPIN [Suspect]
     Active Substance: CARBAMAZEPINE
     Route: 065
  2. HYDROCORTISON [Concomitant]
     Active Substance: HYDROCORTISONE
  3. MOCLOBEMID [Suspect]
     Active Substance: MOCLOBEMIDE
     Route: 048
  4. L-THYROXIN 25 MICROG [Concomitant]
  5. COPAXONE [Suspect]
     Active Substance: GLATIRAMER ACETATE
     Indication: MULTIPLE SCLEROSIS
     Route: 058
  6. GABAPENTIN. [Suspect]
     Active Substance: GABAPENTIN
     Route: 048

REACTIONS (8)
  - Sudden hearing loss [Recovered/Resolved]
  - Cortisol deficiency [Recovered/Resolved]
  - Pain in extremity [Recovered/Resolved]
  - Drug-induced liver injury [Recovered/Resolved]
  - Transaminases increased [Recovered/Resolved]
  - Hypothyroidism [Recovered/Resolved]
  - Liver function test [Recovered/Resolved]
  - Rhabdomyolysis [Recovered/Resolved]

NARRATIVE: CASE EVENT DATE: 20170812
